FAERS Safety Report 17055258 (Version 1)
Quarter: 2019Q4

REPORT INFORMATION
  Report Type: Report from Study
  Country: US (occurrence: US)
  Receive Date: 20191120
  Receipt Date: 20191120
  Transmission Date: 20200122
  Serious: Yes (Hospitalization)
  Sender: FDA-Public Use
  Company Number: US-ACTELION-A-NJ2019-196566

PATIENT
  Sex: Male
  Weight: 124.72 kg

DRUGS (4)
  1. SILDENAFIL CITRATE. [Concomitant]
     Active Substance: SILDENAFIL CITRATE
  2. OPSUMIT [Suspect]
     Active Substance: MACITENTAN
     Indication: PULMONARY ARTERIAL HYPERTENSION
     Dosage: 10 MG, QD
     Route: 048
  3. ADEMPAS [Concomitant]
     Active Substance: RIOCIGUAT
     Dosage: 1 MG, TID
  4. UPTRAVI [Suspect]
     Active Substance: SELEXIPAG
     Indication: PULMONARY ARTERIAL HYPERTENSION
     Dosage: 1000 MCG, BID
     Route: 048
     Dates: start: 20190814

REACTIONS (10)
  - Abdominal discomfort [Unknown]
  - Dizziness [Unknown]
  - Oedema peripheral [Unknown]
  - Headache [Unknown]
  - Fluid retention [Recovering/Resolving]
  - Hospitalisation [Unknown]
  - Nausea [Unknown]
  - Constipation [Unknown]
  - Back pain [Unknown]
  - Pulmonary hypertension [Unknown]
